FAERS Safety Report 7846427-7 (Version None)
Quarter: 2011Q4

REPORT INFORMATION
  Report Type: 
  Country: None (occurrence: None)
  Receive Date: 20111025
  Receipt Date: 20111025
  Transmission Date: 20120403
  Serious: Yes (Death, Hospitalization)
  Sender: FDA-Public Use
  Company Number: None

PATIENT
  Age: 62 Year
  Sex: Male
  Weight: 113.39 kg

DRUGS (13)
  1. LOSARTAN POTASSIUM [Concomitant]
  2. LIPITOR [Concomitant]
  3. ZYRTEC [Concomitant]
  4. TRICOR [Concomitant]
  5. PROZAC [Concomitant]
  6. PRADAXA [Suspect]
     Indication: ATRIAL FIBRILLATION
     Dosage: 150 MG
     Route: 048
  7. DEMADEX [Concomitant]
  8. FERROUS SULFATE TAB [Concomitant]
  9. CARVEDILOL [Concomitant]
  10. B6 [Concomitant]
  11. ACTOS [Concomitant]
  12. POTASSIUM [Concomitant]
  13. QUINAPRIL [Concomitant]

REACTIONS (7)
  - COMA [None]
  - BALANCE DISORDER [None]
  - CEREBELLAR HAEMORRHAGE [None]
  - SUBARACHNOID HAEMORRHAGE [None]
  - HYDROCEPHALUS [None]
  - EXTRAVASATION BLOOD [None]
  - DIZZINESS [None]
